FAERS Safety Report 5923066-6 (Version None)
Quarter: 2008Q4

REPORT INFORMATION
  Report Type: 
  Country: None (occurrence: None)
  Receive Date: 20081018
  Receipt Date: 20081007
  Transmission Date: 20090506
  Serious: Yes (Other)
  Sender: FDA-Public Use
  Company Number: SE-PFIZER INC-2008084818

PATIENT
  Age: 60 Year
  Sex: Female

DRUGS (1)
  1. OESTRING (RING) [Suspect]
     Indication: VULVOVAGINAL DRYNESS
     Dosage: TEXT:7.5 MCG/24H
     Dates: start: 20080901, end: 20080901

REACTIONS (3)
  - BLINDNESS [None]
  - GENERAL PHYSICAL HEALTH DETERIORATION [None]
  - VISUAL IMPAIRMENT [None]
